FAERS Safety Report 15960873 (Version 3)
Quarter: 2019Q3

REPORT INFORMATION
  Report Type: Spontaneous
  Country: US (occurrence: US)
  Receive Date: 20190214
  Receipt Date: 20190826
  Transmission Date: 20191004
  Serious: No
  Sender: FDA-Public Use
  Company Number: US-MYLANLABS-2019M1008842

PATIENT
  Sex: Female
  Weight: 68 kg

DRUGS (1)
  1. ESTRADIOL TRANSDERMAL SYSTEM [Suspect]
     Active Substance: ESTRADIOL
     Indication: HORMONE REPLACEMENT THERAPY
     Dosage: 5 MILLIGRAM
     Route: 062

REACTIONS (5)
  - Application site mass [Recovered/Resolved]
  - Application site rash [Recovered/Resolved]
  - Application site pruritus [Recovered/Resolved]
  - Application site pain [Recovered/Resolved]
  - Application site erythema [Recovered/Resolved]
